FAERS Safety Report 11272721 (Version 1)
Quarter: 2015Q3

REPORT INFORMATION
  Report Type: Report from Study
  Country: US (occurrence: US)
  Receive Date: 20150715
  Receipt Date: 20150715
  Transmission Date: 20151125
  Serious: Yes (Hospitalization)
  Sender: FDA-Public Use
  Company Number: PHHO2015US011387

PATIENT
  Age: 2 Year
  Sex: Female

DRUGS (1)
  1. QTI571 [Suspect]
     Active Substance: IMATINIB
     Indication: PULMONARY VEIN STENOSIS
     Dosage: 138 MG
     Route: 048
     Dates: start: 20110725, end: 20130821

REACTIONS (1)
  - Staphylococcus test positive [Recovered/Resolved]

NARRATIVE: CASE EVENT DATE: 20121114
